FAERS Safety Report 20649967 (Version 2)
Quarter: 2022Q2

REPORT INFORMATION
  Report Type: Spontaneous
  Country: DE (occurrence: DE)
  Receive Date: 20220329
  Receipt Date: 20220422
  Transmission Date: 20220721
  Serious: Yes (Death, Other)
  Sender: FDA-Public Use
  Company Number: DE-DCGMA-21191801

PATIENT
  Age: 83 Year
  Sex: Female

DRUGS (1)
  1. CLARITHROMYCIN [Suspect]
     Active Substance: CLARITHROMYCIN
     Indication: Product used for unknown indication
     Dosage: 1000 DOSAGE FORM, QD (1000 DF DOSAGE FORM EVERY DAYS 2 SEPARATED DOSES)
     Route: 042
     Dates: start: 20210615, end: 20210623

REACTIONS (3)
  - Long QT syndrome [Fatal]
  - Torsade de pointes [Fatal]
  - Ventricular fibrillation [Fatal]

NARRATIVE: CASE EVENT DATE: 20210623
